FAERS Safety Report 18866784 (Version 3)
Quarter: 2021Q1

REPORT INFORMATION
  Report Type: Spontaneous
  Country: US (occurrence: US)
  Receive Date: 20210209
  Receipt Date: 20210308
  Transmission Date: 20210420
  Serious: No
  Sender: FDA-Public Use
  Company Number: US-PFIZER INC-2021104712

PATIENT
  Sex: Male

DRUGS (1)
  1. DEPO?TESTOSTERONE [Suspect]
     Active Substance: TESTOSTERONE CYPIONATE
     Dosage: UNK, EVERY 14 DAYS

REACTIONS (4)
  - Therapeutic product effect variable [Unknown]
  - Muscle spasms [Unknown]
  - Arthralgia [Unknown]
  - Weight decreased [Unknown]
